FAERS Safety Report 23246444 (Version 3)
Quarter: 2024Q1

REPORT INFORMATION
  Report Type: Spontaneous
  Country: US (occurrence: US)
  Receive Date: 20231130
  Receipt Date: 20240119
  Transmission Date: 20240410
  Serious: No
  Sender: FDA-Public Use
  Company Number: US-SA-2023SA365245

PATIENT
  Sex: Male

DRUGS (3)
  1. LANTUS [Suspect]
     Active Substance: INSULIN GLARGINE
     Indication: Diabetes mellitus
     Dosage: 40 IU, QD
     Route: 065
  2. LANTUS [Suspect]
     Active Substance: INSULIN GLARGINE
     Indication: Type 2 diabetes mellitus
     Dosage: 34 IU, QD
     Route: 065
  3. LANTUS [Suspect]
     Active Substance: INSULIN GLARGINE
     Dosage: 39 IU, QD
     Route: 065

REACTIONS (2)
  - Injection site bruising [Unknown]
  - Injection site pain [Unknown]
